FAERS Safety Report 4536366-1 (Version None)
Quarter: 2004Q4

REPORT INFORMATION
  Report Type: 
  Country: None (occurrence: None)
  Receive Date: 20041223
  Receipt Date: 20040825
  Transmission Date: 20050328
  Serious: No
  Sender: FDA-Public Use
  Company Number: US-GLAXOSMITHKLINE-A0523485A

PATIENT
  Age: 49 Year
  Sex: Female

DRUGS (5)
  1. FLONASE [Suspect]
     Dosage: 4SPR PER DAY
     Route: 045
     Dates: start: 19991101
  2. FLOVENT [Concomitant]
  3. SEREVENT [Concomitant]
  4. ENTEX PSE [Concomitant]
  5. SINGULAIR [Concomitant]

REACTIONS (1)
  - DRUG INEFFECTIVE [None]
